FAERS Safety Report 4750771-X (Version None)
Quarter: 2005Q3

REPORT INFORMATION
  Report Type: 
  Country: None (occurrence: None)
  Receive Date: 20050822
  Receipt Date: 20050808
  Transmission Date: 20060218
  Serious: Yes (Hospitalization)
  Sender: FDA-Public Use
  Company Number: 2005BI009528

PATIENT
  Age: 45 Year
  Sex: Female

DRUGS (1)
  1. AVONEX [Suspect]
     Indication: MULTIPLE SCLEROSIS
     Dosage: 30 UG QW IM
     Route: 030
     Dates: start: 20030725

REACTIONS (7)
  - ADENOMYOSIS [None]
  - BIOPSY FALLOPIAN TUBE ABNORMAL [None]
  - CERVICITIS [None]
  - ENDOMETRIAL CANCER [None]
  - FIBROSIS [None]
  - HAEMORRHAGIC OVARIAN CYST [None]
  - UTERINE LEIOMYOMA [None]
